FAERS Safety Report 17697188 (Version 1)
Quarter: 2020Q2

REPORT INFORMATION
  Report Type: Report from Study
  Country: US (occurrence: US)
  Receive Date: 20200423
  Receipt Date: 20200423
  Transmission Date: 20200714
  Serious: Yes (Other)
  Sender: FDA-Public Use
  Company Number: US-ROCHE-2586979

PATIENT
  Sex: Female
  Weight: 86.26 kg

DRUGS (25)
  1. ALENDRONATE [Concomitant]
     Active Substance: ALENDRONATE SODIUM
     Route: 048
  2. LORAZEPAM. [Concomitant]
     Active Substance: LORAZEPAM
     Indication: ANXIETY
     Dosage: AS REQUIRED
     Route: 048
  3. MILK THISTLE [SILYBUM MARIANUM] [Concomitant]
     Active Substance: DIETARY SUPPLEMENT\HERBALS\MILK THISTLE
     Route: 048
  4. MELATONIN [Concomitant]
     Active Substance: MELATONIN
     Dosage: TAKES 1 OR 2 BEFORE BED
     Route: 048
  5. VENLAFAXINE [Concomitant]
     Active Substance: VENLAFAXINE HYDROCHLORIDE
     Indication: ANXIETY
     Route: 048
  6. VITAMIN B6 [Concomitant]
     Active Substance: PYRIDOXINE HYDROCHLORIDE
     Dosage: ALTERNATES BETWEEN VITAMIN B6 AND B COMPLEX ;ONGOING: YES
     Route: 048
  7. APPLE CIDER VINEGAR [Concomitant]
     Active Substance: APPLE CIDER VINEGAR
     Dosage: 1 PILL TWICE A DAY ;ONGOING: YES
     Route: 048
  8. ASPIRIN [ACETYLSALICYLIC ACID] [Concomitant]
     Active Substance: ASPIRIN
  9. BACLOFEN. [Concomitant]
     Active Substance: BACLOFEN
     Route: 048
  10. PROAIR HFA [Concomitant]
     Active Substance: ALBUTEROL SULFATE
     Indication: ASTHMA
     Dosage: 2 PUFFS EVERY 4 HOURS AS NEEDED ;ONGOING: YES
     Route: 055
  11. RANITIDINE. [Concomitant]
     Active Substance: RANITIDINE
     Indication: DYSPEPSIA
     Dosage: 1 TO 2 PILLS AS NEEDED ;ONGOING: NO
     Route: 048
  12. ZINC SULFATE. [Concomitant]
     Active Substance: ZINC SULFATE
     Dosage: EVERY EVENING BEFORE BED ;ONGOING: YES
     Route: 048
  13. IBUPROFEN. [Concomitant]
     Active Substance: IBUPROFEN
     Indication: PAIN
     Dosage: AS REQUIRED
     Route: 048
  14. CALCIUM [Concomitant]
     Active Substance: CALCIUM
     Dosage: TAKES TOTAL OF 2 TABLETS EVERY MORNING (1200 MG) ;ONGOING: YES
     Route: 048
  15. CRANBERRY [VACCINIUM SPP.] [Concomitant]
     Route: 048
  16. METFORMIN [Concomitant]
     Active Substance: METFORMIN HYDROCHLORIDE
     Indication: TYPE 2 DIABETES MELLITUS
     Route: 048
  17. FISH OIL [Concomitant]
     Active Substance: FISH OIL
     Route: 048
  18. TYLENOL [Concomitant]
     Active Substance: ACETAMINOPHEN
  19. LEVOTHYROXINE. [Concomitant]
     Active Substance: LEVOTHYROXINE
     Route: 048
  20. LISINOPRIL. [Concomitant]
     Active Substance: LISINOPRIL
     Indication: HYPERTENSION
     Route: 048
  21. OXYBUTYNIN. [Concomitant]
     Active Substance: OXYBUTYNIN CHLORIDE
     Indication: HYPERTONIC BLADDER
     Route: 048
  22. NAPROXEN. [Concomitant]
     Active Substance: NAPROXEN
     Indication: PAIN
     Dosage: AS REQUIRED
     Route: 048
  23. OCREVUS [Suspect]
     Active Substance: OCRELIZUMAB
     Indication: RELAPSING-REMITTING MULTIPLE SCLEROSIS
     Dosage: STANDARD DOSE ;ONGOING: YES
     Route: 042
     Dates: start: 201812
  24. VITAMIN B COMPLEX [Concomitant]
     Active Substance: CYANOCOBALAMIN\DEXPANTHENOL\NIACINAMIDE\PYRIDOXINE HYDROCHLORIDE\RIBOFLAVIN 5^-PHOSPHATE SODIUM\THIAMINE HYDROCHLORIDE\VITAMIN B COMPLEX
     Dosage: ALTERNATES BETWEEN VITAMIN B6 AND B COMPLEX ;ONGOING: YES
     Route: 048
  25. SIMVASTATIN. [Concomitant]
     Active Substance: SIMVASTATIN
     Indication: PROPHYLAXIS
     Dosage: ONCE EVERY EVENING
     Route: 048

REACTIONS (2)
  - Urinary tract infection [Recovered/Resolved]
  - Muscle strain [Recovered/Resolved]

NARRATIVE: CASE EVENT DATE: 2019
